FAERS Safety Report 9366226 (Version 1)
Quarter: 2013Q2

REPORT INFORMATION
  Report Type: Spontaneous
  Country: US (occurrence: US)
  Receive Date: 20130625
  Receipt Date: 20130625
  Transmission Date: 20140414
  Serious: No
  Sender: FDA-Public Use
  Company Number: US-009507513-2011SP041526

PATIENT
  Sex: Male

DRUGS (2)
  1. ZEGERID OTC CAPSULES [Suspect]
     Indication: GASTROOESOPHAGEAL REFLUX DISEASE
     Dosage: 20 MG, BID
     Route: 048
     Dates: start: 201101, end: 201107
  2. ZEGERID OTC CAPSULES [Suspect]
     Dosage: 20 MG, BID
     Route: 048
     Dates: start: 201101, end: 201107

REACTIONS (3)
  - Drug effect decreased [Unknown]
  - Overdose [Unknown]
  - Incorrect drug administration duration [Unknown]
